FAERS Safety Report 8212211-8 (Version None)
Quarter: 2012Q1

REPORT INFORMATION
  Report Type: 
  Country: None (occurrence: None)
  Receive Date: 20120315
  Receipt Date: 20120309
  Transmission Date: 20120608
  Serious: Yes (Hospitalization)
  Sender: FDA-Public Use
  Company Number: US-BAXTER-2011BH036771

PATIENT
  Sex: Female

DRUGS (1)
  1. DIANEAL [Suspect]
     Indication: PERITONEAL DIALYSIS
     Route: 033

REACTIONS (4)
  - PERITONEAL DIALYSIS COMPLICATION [None]
  - INFECTIOUS PERITONITIS [None]
  - BLOOD ALBUMIN DECREASED [None]
  - HAEMOGLOBIN DECREASED [None]
